FAERS Safety Report 4410045-3 (Version None)
Quarter: 2004Q3

REPORT INFORMATION
  Report Type: 
  Country: None (occurrence: None)
  Receive Date: 20040726
  Receipt Date: 20040715
  Transmission Date: 20050211
  Serious: Yes (Death, Hospitalization)
  Sender: FDA-Public Use
  Company Number: 000569

PATIENT

DRUGS (4)
  1. ZEVALIN [Suspect]
     Dosage: SEE IMAGE INTRAVENOUS
     Route: 042
     Dates: start: 20030429, end: 20030429
  2. ZEVALIN [Suspect]
     Dosage: SEE IMAGE INTRAVENOUS
     Route: 042
     Dates: start: 20030429, end: 20030429
  3. ZEVALIN [Suspect]
     Dosage: SEE IMAGE INTRAVENOUS
     Route: 042
     Dates: start: 20030507, end: 20030507
  4. ZEVALIN [Suspect]
     Dosage: SEE IMAGE INTRAVENOUS
     Route: 042
     Dates: start: 20030507, end: 20030507

REACTIONS (5)
  - DEHYDRATION [None]
  - DIARRHOEA [None]
  - DISEASE PROGRESSION [None]
  - OEDEMA PERIPHERAL [None]
  - PERFORMANCE STATUS DECREASED [None]
